FAERS Safety Report 12328019 (Version 4)
Quarter: 2016Q3

REPORT INFORMATION
  Report Type: Spontaneous
  Country: US (occurrence: US)
  Receive Date: 20160503
  Receipt Date: 20160711
  Transmission Date: 20161109
  Serious: Yes (Hospitalization)
  Sender: FDA-Public Use
  Company Number: PHEH2016US009997

PATIENT
  Age: 74 Year
  Sex: Female
  Weight: 73.3 kg

DRUGS (7)
  1. AROMASIN [Suspect]
     Active Substance: EXEMESTANE
     Indication: PRODUCT USED FOR UNKNOWN INDICATION
     Dosage: 45 MG, QD (ONCE AT NIGHT FOR 1 MONTH)
     Route: 065
     Dates: start: 20160301
  2. HCTZ [Concomitant]
     Active Substance: HYDROCHLOROTHIAZIDE
     Indication: PRODUCT USED FOR UNKNOWN INDICATION
     Dosage: 12.5 MG, UNK
     Route: 065
  3. ANASTROZOLE. [Suspect]
     Active Substance: ANASTROZOLE
     Indication: PRODUCT USED FOR UNKNOWN INDICATION
     Dosage: 1 MG, UNK
     Route: 065
  4. AROMASIN [Suspect]
     Active Substance: EXEMESTANE
     Dosage: UNK
     Route: 065
  5. AMLODIPINE [Concomitant]
     Active Substance: AMLODIPINE BESYLATE
     Indication: BLOOD PRESSURE MEASUREMENT
     Dosage: 10 MG, QD
     Route: 065
  6. LETROZOLE. [Suspect]
     Active Substance: LETROZOLE
     Indication: PRODUCT USED FOR UNKNOWN INDICATION
     Dosage: 2.5 MG, UNK
     Route: 065
  7. EDARBI [Concomitant]
     Active Substance: AZILSARTAN KAMEDOXOMIL
     Indication: BLOOD PRESSURE MEASUREMENT
     Dosage: 40 MG, QD (DAILY IN MORNING)
     Route: 065

REACTIONS (24)
  - Weight increased [Not Recovered/Not Resolved]
  - Joint swelling [Unknown]
  - Weight increased [Recovered/Resolved]
  - Amnesia [Not Recovered/Not Resolved]
  - Limb injury [Recovering/Resolving]
  - Malaise [Not Recovered/Not Resolved]
  - Feeling abnormal [Recovered/Resolved]
  - Visual impairment [Recovering/Resolving]
  - Asthenia [Recovering/Resolving]
  - Confusional state [Not Recovered/Not Resolved]
  - Gait disturbance [Recovered/Resolved]
  - Injury [Recovering/Resolving]
  - Alopecia [Not Recovered/Not Resolved]
  - Back pain [Recovered/Resolved]
  - Alopecia [Recovered/Resolved]
  - Amnesia [Recovered/Resolved]
  - Peripheral swelling [Recovering/Resolving]
  - Depressed mood [Recovered/Resolved]
  - Arthritis [Recovering/Resolving]
  - Peripheral swelling [Recovered/Resolved]
  - Back pain [Not Recovered/Not Resolved]
  - Eye disorder [Not Recovered/Not Resolved]
  - Confusional state [Recovered/Resolved]
  - Eye disorder [Recovered/Resolved]

NARRATIVE: CASE EVENT DATE: 201601
